FAERS Safety Report 9663295 (Version 1)
Quarter: 2013Q4

REPORT INFORMATION
  Report Type: Report from Study
  Country: CA (occurrence: CA)
  Receive Date: 20131101
  Receipt Date: 20131101
  Transmission Date: 20140711
  Serious: Yes (Hospitalization)
  Sender: FDA-Public Use
  Company Number: CA-ROCHE-1296666

PATIENT
  Age: 48 Year
  Sex: Female
  Weight: 56 kg

DRUGS (54)
  1. MYCOPHENOLATE MOFETIL [Suspect]
     Indication: PRODUCT USED FOR UNKNOWN INDICATION
     Route: 065
  2. MYCOPHENOLATE MOFETIL [Suspect]
     Route: 048
  3. MYCOPHENOLATE MOFETIL [Suspect]
     Route: 048
  4. MYCOPHENOLATE MOFETIL [Suspect]
     Route: 048
  5. MYCOPHENOLATE MOFETIL [Suspect]
     Route: 048
  6. MYCOPHENOLATE MOFETIL [Suspect]
     Route: 048
  7. MYCOPHENOLATE MOFETIL [Suspect]
     Route: 048
  8. MYCOPHENOLATE MOFETIL [Suspect]
     Route: 048
  9. MYCOPHENOLATE MOFETIL [Suspect]
     Route: 048
  10. MYCOPHENOLATE MOFETIL [Suspect]
     Route: 048
  11. HYDROCORTISONE SODIUM SUCCINATE [Suspect]
     Indication: PRODUCT USED FOR UNKNOWN INDICATION
     Route: 065
  12. HYDROCORTISONE SODIUM SUCCINATE [Suspect]
     Route: 042
  13. METHYLPREDNISOLONE [Suspect]
     Indication: PRODUCT USED FOR UNKNOWN INDICATION
     Route: 042
  14. METHYLPREDNISOLONE [Suspect]
     Route: 065
  15. METHYLPREDNISOLONE [Suspect]
     Route: 042
  16. METHYLPREDNISOLONE [Suspect]
     Route: 065
  17. METHYLPREDNISOLONE [Suspect]
     Route: 065
  18. METHYLPREDNISOLONE [Suspect]
     Dosage: THERAPY DURATION:  1.0 DAY
     Route: 042
  19. PREDNISOLONE [Suspect]
     Indication: PRODUCT USED FOR UNKNOWN INDICATION
     Route: 048
  20. PREDNISOLONE [Suspect]
     Route: 048
  21. PREDNISOLONE [Suspect]
     Route: 048
  22. PREDNISOLONE [Suspect]
     Route: 048
  23. PREDNISOLONE [Suspect]
     Route: 048
  24. PREDNISOLONE [Suspect]
     Route: 065
  25. PREDNISOLONE [Suspect]
     Route: 048
  26. PREDNISOLONE [Suspect]
     Route: 048
  27. RAPAMUNE [Suspect]
     Indication: PRODUCT USED FOR UNKNOWN INDICATION
     Route: 048
  28. RAPAMUNE [Suspect]
     Route: 048
  29. RAPAMUNE [Suspect]
     Route: 048
  30. DACLIZUMAB [Suspect]
     Indication: PRODUCT USED FOR UNKNOWN INDICATION
     Dosage: STRENGTH: 5MG/ML
     Route: 042
  31. ACTONEL [Concomitant]
     Route: 065
  32. AMLODIPINE BESYLATE [Concomitant]
     Route: 065
  33. BISOPROLOL [Concomitant]
     Route: 065
  34. COLECALCIFEROL [Concomitant]
  35. CALCIUM CARBONATE [Concomitant]
  36. CIPROFLOXACIN [Concomitant]
  37. CLONIDINE [Concomitant]
  38. ERGOCALCIFEROL [Concomitant]
  39. FAMOTIDINE [Concomitant]
  40. GENTAMICIN [Concomitant]
  41. HEPARIN SODIUM [Concomitant]
     Route: 065
  42. HYDROMORPHONE [Concomitant]
  43. INSULIN [Concomitant]
  44. IRON DEXTRAN [Concomitant]
     Route: 065
  45. LASIX [Concomitant]
  46. LIPITOR [Concomitant]
     Route: 065
  47. LORAZEPAM [Concomitant]
  48. METOCLOPRAMIDE [Concomitant]
  49. METRONIDAZOLE [Concomitant]
  50. NYSTATIN [Concomitant]
  51. SULFAMETHOXAZOLE/TRIMETHOPRIM [Concomitant]
     Route: 065
  52. VANCOMYCIN [Concomitant]
  53. ZANTAC [Concomitant]
  54. LINEZOLID [Concomitant]

REACTIONS (1)
  - Pyelonephritis acute [Unknown]
